FAERS Safety Report 4497018-X (Version None)
Quarter: 2004Q3

REPORT INFORMATION
  Report Type: 
  Country: None (occurrence: None)
  Receive Date: 20040928
  Receipt Date: 20040727
  Transmission Date: 20050211
  Serious: No
  Sender: FDA-Public Use
  Company Number: 04P-163-0268223-00

PATIENT
  Age: 64 Year
  Sex: Female

DRUGS (9)
  1. HUMIRA [Suspect]
     Indication: RHEUMATOID ARTHRITIS
     Dosage: 40 MG, 1 IN 1 WK, SUBCTANEOUS
     Route: 058
     Dates: start: 20030101
  2. METHOTREXATE [Concomitant]
  3. CELECOXIB [Concomitant]
  4. FOLIC ACID [Concomitant]
  5. LEVOTHYROXINE SODIUM [Concomitant]
  6. CALCIUM [Concomitant]
  7. MULTI-VITAMINS [Concomitant]
  8. LINSEED OIL [Concomitant]
  9. ESOMEPRAZOLE [Concomitant]

REACTIONS (2)
  - BLISTER [None]
  - RASH [None]
